FAERS Safety Report 8147570 (Version 4)
Quarter: 2014Q2

REPORT INFORMATION
  Report Type: Spontaneous
  Country: US (occurrence: US)
  Receive Date: 20110922
  Receipt Date: 20140624
  Transmission Date: 20141212
  Serious: Yes (Hospitalization, Other)
  Sender: FDA-Public Use
  Company Number: US-ASTRAZENECA-2011SE22702

PATIENT
  Age: 60 Year
  Sex: Male
  Weight: 106.6 kg

DRUGS (38)
  1. SEROQUEL XR [Suspect]
     Indication: SLEEP DISORDER
     Route: 048
     Dates: start: 2009, end: 201312
  2. SEROQUEL XR [Suspect]
     Indication: BIPOLAR DISORDER
     Route: 048
     Dates: start: 2009, end: 201312
  3. SEROQUEL XR [Suspect]
     Indication: INSOMNIA
     Route: 048
     Dates: start: 2009, end: 201312
  4. SEROQUEL XR [Suspect]
     Indication: RESTLESSNESS
     Route: 048
     Dates: start: 2009, end: 201312
  5. SEROQUEL XR [Suspect]
     Indication: SLEEP DISORDER
     Route: 048
     Dates: start: 2011, end: 201409
  6. SEROQUEL XR [Suspect]
     Indication: BIPOLAR DISORDER
     Route: 048
     Dates: start: 2011, end: 201409
  7. SEROQUEL XR [Suspect]
     Indication: INSOMNIA
     Route: 048
     Dates: start: 2011, end: 201409
  8. SEROQUEL XR [Suspect]
     Indication: RESTLESSNESS
     Route: 048
     Dates: start: 2011, end: 201409
  9. SEROQUEL XR [Suspect]
     Indication: SLEEP DISORDER
     Dosage: TAKE ONE AND A HALF DOSES OF SEROQUEL XR
     Route: 048
  10. SEROQUEL XR [Suspect]
     Indication: BIPOLAR DISORDER
     Dosage: TAKE ONE AND A HALF DOSES OF SEROQUEL XR
     Route: 048
  11. SEROQUEL XR [Suspect]
     Indication: INSOMNIA
     Dosage: TAKE ONE AND A HALF DOSES OF SEROQUEL XR
     Route: 048
  12. SEROQUEL XR [Suspect]
     Indication: RESTLESSNESS
     Dosage: TAKE ONE AND A HALF DOSES OF SEROQUEL XR
     Route: 048
  13. SEROQUEL XR [Suspect]
     Indication: SLEEP DISORDER
     Route: 048
  14. SEROQUEL XR [Suspect]
     Indication: BIPOLAR DISORDER
     Route: 048
  15. SEROQUEL XR [Suspect]
     Indication: INSOMNIA
     Route: 048
  16. SEROQUEL XR [Suspect]
     Indication: RESTLESSNESS
     Route: 048
  17. LISINOPRIL [Suspect]
     Route: 048
  18. SIMVASTATIN [Concomitant]
     Route: 048
  19. PAROXETINE [Concomitant]
     Route: 048
  20. KLONOPIN [Concomitant]
     Indication: BIPOLAR DISORDER
     Route: 048
  21. HYDROCHLOROTHIAZIDE [Concomitant]
     Route: 048
  22. AMLODIPINE [Concomitant]
     Indication: HYPERTENSION
     Route: 048
  23. VIAGRA [Concomitant]
     Route: 048
  24. FLONASE [Concomitant]
     Dosage: 50 MCG/ACTUATION
     Route: 045
  25. ALBUTEROL [Concomitant]
     Indication: ASTHMA
     Dosage: 2.5 MG/3 ML
     Route: 055
  26. ALBUTEROL [Concomitant]
     Indication: ASTHMA
     Dosage: 90 MCG/ACTUATION
     Route: 055
  27. ALBUTEROL [Concomitant]
     Indication: ASTHMA
     Dosage: 1 PUFF AS REQUIRED
     Route: 055
  28. SINGULAIR [Concomitant]
     Indication: ASTHMA
     Route: 048
  29. ADVAIR DISKUS [Concomitant]
     Indication: ASTHMA
     Route: 055
  30. EPINEPHRINE [Concomitant]
     Dosage: 0.3 MG/0.3 ML
     Route: 030
  31. EPINEPHRINE [Concomitant]
  32. EXCEDRIN [Concomitant]
     Dosage: 250-250-65 MG
     Route: 048
  33. MONTELUKAST SODIUM [Concomitant]
     Indication: BLOOD CHOLESTEROL ABNORMAL
     Route: 048
  34. MELATONIN [Concomitant]
  35. VALERIAN ROOT [Concomitant]
  36. TYLENOL PM [Concomitant]
  37. TRAZADONE [Concomitant]
  38. PAXIL [Concomitant]
     Indication: BIPOLAR DISORDER
     Route: 048

REACTIONS (16)
  - Meniscus injury [Unknown]
  - Ligament injury [Unknown]
  - Loss of consciousness [Unknown]
  - Hypokalaemia [Unknown]
  - Drug dose omission [Not Recovered/Not Resolved]
  - Swelling [Unknown]
  - Insomnia [Unknown]
  - Malaise [Recovering/Resolving]
  - Memory impairment [Recovering/Resolving]
  - Drug hypersensitivity [Unknown]
  - Arthralgia [Unknown]
  - Vertigo [Unknown]
  - Intentional product misuse [Unknown]
  - Drug ineffective for unapproved indication [Unknown]
  - Drug ineffective [Unknown]
  - Off label use [Unknown]
